FAERS Safety Report 20158316 (Version 1)
Quarter: 2021Q4

REPORT INFORMATION
  Report Type: Spontaneous
  Country: US (occurrence: US)
  Receive Date: 20211207
  Receipt Date: 20211207
  Transmission Date: 20220303
  Serious: No
  Sender: FDA-Public Use
  Company Number: US-SA-SAC20211202000619

PATIENT
  Age: 49 Year
  Sex: Female

DRUGS (5)
  1. DUPIXENT [Suspect]
     Active Substance: DUPILUMAB
     Indication: Dermatitis atopic
     Dosage: 300 MG, QOW
     Route: 058
     Dates: start: 20200220
  2. METFORMIN [Concomitant]
     Active Substance: METFORMIN HYDROCHLORIDE
  3. VENLAFAXINE [Concomitant]
     Active Substance: VENLAFAXINE HYDROCHLORIDE
  4. METOPROLOL [Concomitant]
     Active Substance: METOPROLOL
  5. ETHINYL ESTRADIOL\NORETHINDRONE [Concomitant]
     Active Substance: ETHINYL ESTRADIOL\NORETHINDRONE

REACTIONS (3)
  - Discomfort [Not Recovered/Not Resolved]
  - Eczema [Not Recovered/Not Resolved]
  - Dermatitis atopic [Not Recovered/Not Resolved]

NARRATIVE: CASE EVENT DATE: 20211101
